FAERS Safety Report 4381497-2 (Version None)
Quarter: 2004Q2

REPORT INFORMATION
  Report Type: 
  Country: None (occurrence: None)
  Receive Date: 20040616
  Receipt Date: 20040528
  Transmission Date: 20050107
  Serious: Yes (Other)
  Sender: FDA-Public Use
  Company Number: A03200401768

PATIENT
  Sex: Male

DRUGS (2)
  1. ZOLPIDEM TARTRATE [Suspect]
     Dosage: ORAL
     Route: 048
     Dates: start: 20020101
  2. ALCOHOL - LIQUID - UNIT DOSE : UNKNOWN [Suspect]
     Dosage: ORAL
     Route: 048

REACTIONS (6)
  - ALCOHOL INTERACTION [None]
  - AMNESIA [None]
  - CONVULSION [None]
  - DRUG EXPOSURE DURING PREGNANCY [None]
  - HALLUCINATION [None]
  - TRANSMISSION OF DRUG VIA SEMEN [None]
